FAERS Safety Report 25616324 (Version 2)
Quarter: 2025Q4

REPORT INFORMATION
  Report Type: Report from Study
  Country: EU (occurrence: EU)
  Receive Date: 20250729
  Receipt Date: 20251111
  Transmission Date: 20260118
  Serious: Yes (Other)
  Sender: RANBAXY
  Company Number: EU-SUN PHARMACEUTICAL INDUSTRIES INC-2025R1-518971

PATIENT
  Age: 26 Year
  Sex: Male

DRUGS (17)
  1. ACETAZOLAMIDE [Suspect]
     Active Substance: ACETAZOLAMIDE
     Indication: Cystoid macular oedema
     Dosage: UNK
     Route: 048
  2. CYCLOSPORINE [Suspect]
     Active Substance: CYCLOSPORINE
     Indication: Cystoid macular oedema
     Dosage: UNK
     Route: 048
  3. CYCLOSPORINE [Suspect]
     Active Substance: CYCLOSPORINE
     Indication: Retinitis pigmentosa
  4. CYCLOSPORINE [Suspect]
     Active Substance: CYCLOSPORINE
     Indication: Cystoid macular oedema
     Dosage: UNK
     Route: 047
  5. CYCLOSPORINE [Suspect]
     Active Substance: CYCLOSPORINE
     Indication: Retinitis pigmentosa
  6. DEXAMETHASONE [Suspect]
     Active Substance: DEXAMETHASONE
     Indication: Cystoid macular oedema
     Dosage: 0.7 MILLIGRAM
  7. DEXAMETHASONE [Suspect]
     Active Substance: DEXAMETHASONE
     Indication: Retinitis pigmentosa
  8. NEPAFENAC [Suspect]
     Active Substance: NEPAFENAC
     Indication: Cystoid macular oedema
     Dosage: UNK
     Route: 047
  9. NEPAFENAC [Suspect]
     Active Substance: NEPAFENAC
     Indication: Retinitis pigmentosa
  10. ADALIMUMAB [Suspect]
     Active Substance: ADALIMUMAB
     Indication: Cystoid macular oedema
     Dosage: UNK
     Route: 058
  11. ADALIMUMAB [Suspect]
     Active Substance: ADALIMUMAB
     Indication: Retinitis pigmentosa
  12. AZATHIOPRINE [Suspect]
     Active Substance: AZATHIOPRINE
     Indication: Cystoid macular oedema
     Dosage: UNK
     Route: 065
  13. AZATHIOPRINE [Suspect]
     Active Substance: AZATHIOPRINE
     Indication: Retinitis pigmentosa
     Dosage: UNK
     Route: 065
  14. DORZOLAMIDE [Suspect]
     Active Substance: DORZOLAMIDE
     Indication: Cystoid macular oedema
     Dosage: UNK
     Route: 065
  15. DORZOLAMIDE [Suspect]
     Active Substance: DORZOLAMIDE
     Indication: Retinitis pigmentosa
  16. TRIAMCINOLONE ACETONIDE [Suspect]
     Active Substance: TRIAMCINOLONE ACETONIDE
     Indication: Cystoid macular oedema
     Dosage: UNK
     Route: 047
  17. TRIAMCINOLONE ACETONIDE [Suspect]
     Active Substance: TRIAMCINOLONE ACETONIDE
     Indication: Retinitis pigmentosa

REACTIONS (4)
  - Ocular hypertension [Recovered/Resolved]
  - Renal colic [Unknown]
  - Cystoid macular oedema [Recovered/Resolved]
  - Therapeutic product effect incomplete [Unknown]
